FAERS Safety Report 5258524-3 (Version None)
Quarter: 2007Q1

REPORT INFORMATION
  Report Type: 
  Country: None (occurrence: None)
  Receive Date: 20070305
  Receipt Date: 20070216
  Transmission Date: 20070707
  Serious: Yes (Hospitalization)
  Sender: FDA-Public Use
  Company Number: 2007RR-05881

PATIENT
  Age: 51 Year
  Sex: Male

DRUGS (3)
  1. IBUPROFEN [Suspect]
     Indication: RHINITIS
  2. DEXTROMETHORPHAN [Concomitant]
  3. PSEUDOEPHEDRINE HCL [Concomitant]

REACTIONS (1)
  - MENINGITIS ASEPTIC [None]
